FAERS Safety Report 8542502-2 (Version None)
Quarter: 2012Q3

REPORT INFORMATION
  Report Type: 
  Country: None (occurrence: None)
  Receive Date: 20120726
  Receipt Date: 20110725
  Transmission Date: 20120928
  Serious: Yes (Hospitalization, Other)
  Sender: FDA-Public Use
  Company Number: US-ASTRAZENECA-2011SE37766

PATIENT
  Age: 49 Year
  Sex: Female
  Weight: 90.7 kg

DRUGS (21)
  1. SEROQUEL [Suspect]
     Indication: ANXIETY
     Route: 048
     Dates: start: 20020101
  2. SEROQUEL [Suspect]
     Route: 048
  3. KLONOPIN [Concomitant]
  4. SEROQUEL [Suspect]
     Indication: PANIC ATTACK
     Route: 048
     Dates: start: 20020101
  5. SEROQUEL [Suspect]
     Route: 048
     Dates: start: 20100601
  6. SEROQUEL [Suspect]
     Route: 048
  7. SEROQUEL [Suspect]
     Route: 048
     Dates: start: 20100601
  8. SEROQUEL [Suspect]
     Route: 048
     Dates: start: 20100601
  9. TRQAMADOL [Concomitant]
  10. SEROQUEL [Suspect]
     Route: 048
  11. SEROQUEL [Suspect]
     Route: 048
  12. SEROQUEL [Suspect]
     Route: 048
  13. LORTAB [Concomitant]
  14. HYDROCODONE BITARTRATE [Concomitant]
  15. AMBIEN [Concomitant]
  16. TRAZODONE HCL [Concomitant]
  17. SEROQUEL [Suspect]
     Indication: BIPOLAR DISORDER
     Route: 048
     Dates: start: 20020101
  18. TOPAMAX [Concomitant]
  19. SEROQUEL [Suspect]
     Route: 048
  20. GENERIC FLEXERIL [Concomitant]
  21. CLONAZEPAM [Concomitant]

REACTIONS (4)
  - DRUG INEFFECTIVE FOR UNAPPROVED INDICATION [None]
  - MENTAL DISORDER [None]
  - OFF LABEL USE [None]
  - WEIGHT INCREASED [None]
